FAERS Safety Report 13762545 (Version 2)
Quarter: 2017Q3

REPORT INFORMATION
  Report Type: Spontaneous
  Country: US (occurrence: US)
  Receive Date: 20170718
  Receipt Date: 20170803
  Transmission Date: 20171127
  Serious: No
  Sender: FDA-Public Use
  Company Number: US-PFIZER INC-2017252626

PATIENT
  Age: 33 Year
  Sex: Male

DRUGS (1)
  1. XELJANZ XR [Suspect]
     Active Substance: TOFACITINIB CITRATE
     Indication: COLLAGEN DISORDER
     Dosage: 11 MG, DAILY

REACTIONS (7)
  - Musculoskeletal stiffness [Unknown]
  - Arthralgia [Unknown]
  - Synovitis [Recovering/Resolving]
  - Dermatitis [Unknown]
  - Product use in unapproved indication [Unknown]
  - Rash [Recovered/Resolved]
  - Pain in extremity [Unknown]
